FAERS Safety Report 8457775 (Version 2)
Quarter: 2015Q2

REPORT INFORMATION
  Report Type: Report from Study
  Country: US (occurrence: US)
  Receive Date: 20120314
  Receipt Date: 20150416
  Transmission Date: 20150821
  Serious: Yes (Death)
  Sender: FDA-Public Use
  Company Number: US-ASTELLAS-2012US002675

PATIENT
  Sex: Male

DRUGS (9)
  1. ERLOTINIB [Suspect]
     Active Substance: ERLOTINIB
     Indication: METASTASES TO KIDNEY
  2. ZOMETA [Concomitant]
     Active Substance: ZOLEDRONIC ACID
     Indication: PRODUCT USED FOR UNKNOWN INDICATION
     Dosage: UNK UNK, UNKNOWN FREQ.
     Route: 065
  3. ERLOTINIB [Suspect]
     Active Substance: ERLOTINIB
     Indication: METASTASES TO BONE
  4. XELODA [Suspect]
     Active Substance: CAPECITABINE
     Indication: SALIVARY GLAND CANCER
     Route: 048
  5. XELODA [Suspect]
     Active Substance: CAPECITABINE
     Indication: BONE CANCER
  6. ERLOTINIB [Suspect]
     Active Substance: ERLOTINIB
     Indication: SALIVARY GLAND CANCER
     Route: 048
     Dates: start: 20111116
  7. ERLOTINIB [Suspect]
     Active Substance: ERLOTINIB
     Indication: METASTASES TO LUNG
  8. XELODA [Suspect]
     Active Substance: CAPECITABINE
     Indication: NEOPLASM MALIGNANT
  9. XELODA [Suspect]
     Active Substance: CAPECITABINE
     Indication: MYELODYSPLASTIC SYNDROME

REACTIONS (1)
  - Death [Fatal]
